FAERS Safety Report 10995188 (Version 1)
Quarter: 2015Q2

REPORT INFORMATION
  Report Type: Spontaneous
  Country: US (occurrence: US)
  Receive Date: 20150407
  Receipt Date: 20150407
  Transmission Date: 20150821
  Serious: No
  Sender: FDA-Public Use
  Company Number: US-009507513-1504USA002312

PATIENT
  Sex: Male

DRUGS (1)
  1. ASMANEX [Suspect]
     Active Substance: MOMETASONE FUROATE
     Dosage: ONE PUFF, BID
     Route: 055
     Dates: start: 20150316

REACTIONS (3)
  - Drug administration error [Unknown]
  - No adverse event [Unknown]
  - Product container issue [Unknown]

NARRATIVE: CASE EVENT DATE: 2015
